FAERS Safety Report 4672762-X (Version None)
Quarter: 2005Q2

REPORT INFORMATION
  Report Type: 
  Country: None (occurrence: None)
  Receive Date: 20050523
  Receipt Date: 20050510
  Transmission Date: 20051028
  Serious: Yes (Hospitalization)
  Sender: FDA-Public Use
  Company Number: 2005073376

PATIENT
  Age: 15 Year
  Sex: Male
  Weight: 50 kg

DRUGS (20)
  1. XANAX [Suspect]
     Indication: ILL-DEFINED DISORDER
     Dosage: 0.75 MG (EVERY DAY), ORAL
     Route: 048
  2. VFEND [Suspect]
     Indication: ASPERGILLOSIS
     Dosage: 400 MG (200 MG, 2 IN 1 D), ORAL
     Route: 048
     Dates: start: 20050216
  3. METRONIDAZOLE [Suspect]
     Indication: ILL-DEFINED DISORDER
     Dosage: 1200 MG (400 MG, 3 IN 1 D), INTRAVENOUS
     Route: 042
  4. CANCIDAS [Suspect]
     Indication: ASPERGILLOSIS
     Dosage: 50 MG (EVERY DAY), INTRAVENOUS
     Route: 042
     Dates: start: 20050216
  5. ZOLPIDEM TARTRATE [Suspect]
     Indication: ILL-DEFINED DISORDER
     Dosage: 10 MG (10 MG), ORAL
     Route: 048
  6. BACTRIM [Suspect]
     Indication: ILL-DEFINED DISORDER
     Dosage: (800 MG, 3 IN 1 WK), ORAL
     Route: 048
  7. CHROMIUM (CHROMIUM) [Concomitant]
  8. FOLIC ACID [Concomitant]
  9. LEVOCARNITINE (LEVOCARNITINE) [Concomitant]
  10. LISINOPRIL DIHYDRATE (LISINOPRIL DIHYDRATE) [Concomitant]
  11. DOMPERIDONE (DOMPERIDONE) [Concomitant]
  12. LACTOBACILLUS ACIDOPHILUS (LACTOBACILLUS ACIDOPHILUS) [Concomitant]
  13. OMEPRAZOLE [Concomitant]
  14. METOCLOPRAMIDE [Concomitant]
  15. PHLOROGLUCINOL (PHLOROGLUCINOL) [Concomitant]
  16. VITAMINS (VITAMINS) [Concomitant]
  17. ASCORBIC ACID [Concomitant]
  18. IRON (IRON) [Concomitant]
  19. GLUTAMINE (LEVOGLUTAMINE) [Concomitant]
  20. CALCIUM LEVOFOLINATE (CALCIUM LEVOFOLINATE) [Concomitant]

REACTIONS (4)
  - NEUROPATHY PERIPHERAL [None]
  - OEDEMA PERIPHERAL [None]
  - PARAESTHESIA [None]
  - SENSORY DISTURBANCE [None]
